FAERS Safety Report 25200504 (Version 1)
Quarter: 2025Q2

REPORT INFORMATION
  Report Type: Spontaneous
  Country: US (occurrence: US)
  Receive Date: 20250415
  Receipt Date: 20250415
  Transmission Date: 20250717
  Serious: No
  Sender: DUCHESNAY
  Company Number: US-MIMS-DUC-2025-US-00056

PATIENT

DRUGS (3)
  1. OSPHENA [Suspect]
     Active Substance: OSPEMIFENE
     Indication: Product used for unknown indication
     Dosage: 60 MILLIGRAM, 2 TIMES A WEEK
  2. OSPHENA [Suspect]
     Active Substance: OSPEMIFENE
     Dosage: 60 MILLIGRAM, 3 TIMES A WEEK
  3. METFORMIN [Concomitant]
     Active Substance: METFORMIN HYDROCHLORIDE
     Indication: Diabetes mellitus
     Dosage: 500 MILLIGRAM ONCE PER DAY

REACTIONS (2)
  - Vulvovaginal mycotic infection [Unknown]
  - Product use issue [Unknown]

NARRATIVE: CASE EVENT DATE: 20240101
